FAERS Safety Report 8288884-0 (Version None)
Quarter: 2012Q2

REPORT INFORMATION
  Report Type: 
  Country: None (occurrence: None)
  Receive Date: 20120412
  Receipt Date: 20120328
  Transmission Date: 20120825
  Serious: Yes (Other)
  Sender: FDA-Public Use
  Company Number: GER/GER/12/0023675

PATIENT
  Sex: Female

DRUGS (2)
  1. ALENDRONIC ACID (ALENDRONIC ACID) [Suspect]
     Indication: PRODUCT USED FOR UNKNOWN INDICATION
     Dosage: 70 MG, 1 IN 1 WK;
     Dates: start: 20010101
  2. CALCIUM AND VITAMIN D (OS-CAL) [Concomitant]

REACTIONS (3)
  - FEMUR FRACTURE [None]
  - PATELLA FRACTURE [None]
  - FALL [None]
